FAERS Safety Report 9250413 (Version 1)
Quarter: 2013Q1

REPORT INFORMATION
  Report Type: Spontaneous
  Country: US (occurrence: None)
  Receive Date: 20130305
  Receipt Date: 20130305
  Transmission Date: 20140127
  Serious: Yes (Other)
  Sender: FDA-Public Use
  Company Number: 163-21880-12042875

PATIENT
  Age: 51 Year
  Sex: Male
  Weight: 249.03 kg

DRUGS (2)
  1. REVLIMID [Suspect]
     Indication: PLASMA CELL MYELOMA
     Dosage: 1 IN 1 D
     Route: 048
     Dates: start: 20120410, end: 20120425
  2. ZOLEDRONIC ACID (ZOLEDRONIC ACID) [Suspect]

REACTIONS (1)
  - Rash [None]
